FAERS Safety Report 6121305-2 (Version None)
Quarter: 2009Q1

REPORT INFORMATION
  Report Type: 
  Country: None (occurrence: None)
  Receive Date: 20090312
  Receipt Date: 20090312
  Transmission Date: 20090719
  Serious: Yes (Other)
  Sender: FDA-Public Use
  Company Number: None

PATIENT
  Sex: Female

DRUGS (3)
  1. HUMIRA [Suspect]
     Indication: PSORIASIS
     Dosage: 40MG EVERY 2 WEEKS SQ
     Route: 058
     Dates: start: 20081001, end: 20090311
  2. ISONIAZID [Concomitant]
  3. VITAMIN B6 [Concomitant]

REACTIONS (1)
  - EXPOSURE TO COMMUNICABLE DISEASE [None]
